FAERS Safety Report 5921043-2 (Version None)
Quarter: 2008Q4

REPORT INFORMATION
  Report Type: 
  Country: None (occurrence: None)
  Receive Date: 20081016
  Receipt Date: 20081006
  Transmission Date: 20090506
  Serious: Yes (Disabling)
  Sender: FDA-Public Use
  Company Number: GB-PFIZER INC-2008077412

PATIENT
  Sex: Male

DRUGS (7)
  1. VIBRAMYCIN [Suspect]
     Indication: LOWER RESPIRATORY TRACT INFECTION
     Dates: start: 20070101
  2. VIBRAMYCIN [Suspect]
     Indication: SINUSITIS
  3. AMOXICILLIN [Concomitant]
  4. FLOXACILLIN SODIUM [Concomitant]
  5. CEFALEXIN [Concomitant]
  6. AMOXICILLIN + CLAVULANATE POTASSIUM [Concomitant]
  7. METRONIDAZOLE [Concomitant]

REACTIONS (2)
  - ARTHRALGIA [None]
  - MYALGIA [None]
